FAERS Safety Report 18868057 (Version 2)
Quarter: 2021Q2

REPORT INFORMATION
  Report Type: Spontaneous
  Country: US (occurrence: US)
  Receive Date: 20210209
  Receipt Date: 20210407
  Transmission Date: 20210717
  Serious: Yes (Other)
  Sender: FDA-Public Use
  Company Number: US-CELGENEUS-USA-20210200987

PATIENT
  Sex: Female
  Weight: 57.2 kg

DRUGS (2)
  1. REVLIMID [Suspect]
     Active Substance: LENALIDOMIDE
     Indication: MYELODYSPLASTIC SYNDROME
     Dosage: 10 MILLIGRAM
     Route: 048
     Dates: start: 20201119
  2. REVLIMID [Suspect]
     Active Substance: LENALIDOMIDE
     Indication: HODGKIN^S DISEASE

REACTIONS (5)
  - Haemoglobin decreased [Not Recovered/Not Resolved]
  - Nausea [Not Recovered/Not Resolved]
  - Fatigue [Not Recovered/Not Resolved]
  - Joint swelling [Not Recovered/Not Resolved]
  - Taste disorder [Not Recovered/Not Resolved]
